FAERS Safety Report 5347430-1 (Version None)
Quarter: 2007Q2

REPORT INFORMATION
  Report Type: 
  Country: None (occurrence: None)
  Receive Date: 20070604
  Receipt Date: 20070604
  Transmission Date: 20071010
  Serious: Yes (Life-Threatening)
  Sender: FDA-Public Use
  Company Number: None

PATIENT
  Age: 41 Year
  Sex: Female
  Weight: 81.6475 kg

DRUGS (2)
  1. ZOLOFT [Suspect]
     Indication: DEPRESSION
     Dosage: ONE PILL DAILY PO
     Route: 048
     Dates: start: 20050101, end: 20070519
  2. WELLBUTRIN [Concomitant]

REACTIONS (2)
  - MENTAL IMPAIRMENT [None]
  - SUICIDE ATTEMPT [None]
